FAERS Safety Report 5821959-1 (Version None)
Quarter: 2008Q3

REPORT INFORMATION
  Report Type: 
  Country: None (occurrence: None)
  Receive Date: 20080724
  Receipt Date: 20080717
  Transmission Date: 20090109
  Serious: Yes (Other)
  Sender: FDA-Public Use
  Company Number: US-GENENTECH-263270

PATIENT
  Sex: Male

DRUGS (4)
  1. XOLAIR [Suspect]
     Indication: ASTHMA
     Dosage: 150 MG, Q4W
     Route: 058
     Dates: start: 20060713, end: 20070208
  2. ADVAIR DISKUS 100/50 [Concomitant]
     Indication: DRUG USE FOR UNKNOWN INDICATION
     Dosage: 1 PUFF, BID
  3. ALBUTEROL [Concomitant]
     Indication: DRUG USE FOR UNKNOWN INDICATION
     Dosage: 2 PUFF, PRN
  4. SINGULAIR [Concomitant]
     Indication: DRUG USE FOR UNKNOWN INDICATION
     Dosage: 10 MG, QHS

REACTIONS (1)
  - DEPRESSION [None]
